FAERS Safety Report 9485818 (Version 3)
Quarter: 2013Q3

REPORT INFORMATION
  Report Type: Spontaneous
  Country: JP (occurrence: JP)
  Receive Date: 20130829
  Receipt Date: 20130924
  Transmission Date: 20140515
  Serious: Yes (Hospitalization, Disabling, Other)
  Sender: FDA-Public Use
  Company Number: PHHY2013JP089752

PATIENT
  Age: 57 Year
  Sex: Female
  Weight: 55 kg

DRUGS (5)
  1. FEMARA [Suspect]
     Indication: INFLAMMATORY CARCINOMA OF BREAST RECURRENT
     Dosage: 2.5 MG, DAILY
     Route: 048
     Dates: end: 20130814
  2. XELODA [Suspect]
     Indication: INFLAMMATORY CARCINOMA OF BREAST RECURRENT
     Dosage: UNK
     Route: 048
     Dates: start: 20130131, end: 20130807
  3. 5-FU [Concomitant]
     Dosage: UNK UKN, UKN
     Dates: start: 20120308, end: 20121206
  4. EPIRUBICIN HYDROCHLORIDE [Concomitant]
     Dosage: UNK UKN, UNK
     Dates: start: 20120308, end: 20121206
  5. CYCLOPHOSPHAMIDE [Concomitant]
     Dosage: UNK UKN, UNK
     Dates: start: 20120308, end: 20121206

REACTIONS (13)
  - Pericardial effusion [Unknown]
  - Jugular vein thrombosis [Not Recovered/Not Resolved]
  - Neck pain [Not Recovered/Not Resolved]
  - Odynophagia [Unknown]
  - Vena cava thrombosis [Not Recovered/Not Resolved]
  - Inflammatory carcinoma of breast recurrent [Unknown]
  - Malignant neoplasm progression [Unknown]
  - Lymphadenopathy [Unknown]
  - C-reactive protein increased [Unknown]
  - Blood alkaline phosphatase increased [Unknown]
  - Blood lactate dehydrogenase increased [Unknown]
  - Aspartate aminotransferase increased [Unknown]
  - Blood albumin decreased [Unknown]
